FAERS Safety Report 15620703 (Version 1)
Quarter: 2018Q4

REPORT INFORMATION
  Report Type: Report from Study
  Country: BE (occurrence: BE)
  Receive Date: 20181115
  Receipt Date: 20181115
  Transmission Date: 20190205
  Serious: Yes (Hospitalization)
  Sender: FDA-Public Use
  Company Number: BE-TEVA-2018-BE-973960

PATIENT
  Age: 36 Year
  Sex: Male

DRUGS (4)
  1. OXALIPLATIN. [Suspect]
     Active Substance: OXALIPLATIN
     Indication: ADENOCARCINOMA OF COLON
     Dosage: DILUTED IN A 5% GLUCOSE SOLUTION GIVEN FOR 30 MIN AT 41.5-43 DEGC
     Route: 033
     Dates: start: 201703
  2. FLUOROURACIL. [Suspect]
     Active Substance: FLUOROURACIL
     Indication: ADENOCARCINOMA OF COLON
     Route: 042
     Dates: start: 201703
  3. FOLINIC ACID [Suspect]
     Active Substance: LEUCOVORIN
     Indication: ADENOCARCINOMA OF COLON
     Route: 042
     Dates: start: 201703
  4. GLUCOSE [Concomitant]
     Active Substance: DEXTROSE
     Dosage: 2 L/M2
     Route: 033

REACTIONS (2)
  - Encapsulating peritoneal sclerosis [Recovered/Resolved]
  - Off label use [Unknown]
